FAERS Safety Report 8539738-3 (Version None)
Quarter: 2012Q3

REPORT INFORMATION
  Report Type: 
  Country: None (occurrence: None)
  Receive Date: 20120726
  Receipt Date: 20120402
  Transmission Date: 20120928
  Serious: No
  Sender: FDA-Public Use
  Company Number: US-ASTRAZENECA-2009UW18989

PATIENT
  Sex: Female

DRUGS (2)
  1. SEROQUEL [Suspect]
     Route: 048
     Dates: start: 20070701
  2. SEROQUEL [Suspect]
     Route: 048

REACTIONS (11)
  - WEIGHT INCREASED [None]
  - ABDOMINAL PAIN [None]
  - OROPHARYNGEAL PAIN [None]
  - MUSCLE RIGIDITY [None]
  - VIRAL INFECTION [None]
  - HEADACHE [None]
  - DYSKINESIA [None]
  - DEHYDRATION [None]
  - PYREXIA [None]
  - TREMOR [None]
  - MUSCLE TWITCHING [None]
